APPROVED DRUG PRODUCT: CAFFEINE CITRATE
Active Ingredient: CAFFEINE CITRATE
Strength: EQ 30MG BASE/3ML (EQ 10MG BASE/ML)
Dosage Form/Route: SOLUTION;INTRAVENOUS
Application: A205013 | Product #001
Applicant: EUGIA PHARMA SPECIALITIES LTD
Approved: Sep 22, 2015 | RLD: No | RS: No | Type: DISCN